FAERS Safety Report 7290464-0 (Version None)
Quarter: 2011Q1

REPORT INFORMATION
  Report Type: 
  Country: None (occurrence: None)
  Receive Date: 20110214
  Receipt Date: 20110207
  Transmission Date: 20110831
  Serious: No
  Sender: FDA-Public Use
  Company Number: US-PFIZER INC-2011027615

PATIENT
  Sex: Female
  Weight: 64 kg

DRUGS (3)
  1. LIPITOR [Suspect]
     Indication: BLOOD CHOLESTEROL INCREASED
     Dosage: 20 MG, DAILY
     Route: 048
     Dates: start: 20110101
  2. SYNTHROID [Concomitant]
     Dosage: UNK
  3. PREMPRO [Concomitant]
     Dosage: UNK

REACTIONS (1)
  - URINE ODOUR ABNORMAL [None]
